FAERS Safety Report 18637029 (Version 3)
Quarter: 2021Q1

REPORT INFORMATION
  Report Type: Spontaneous
  Country: RO (occurrence: RO)
  Receive Date: 20201218
  Receipt Date: 20210108
  Transmission Date: 20210419
  Serious: Yes (Death, Life-Threatening, Hospitalization)
  Sender: FDA-Public Use
  Company Number: RO-ASTRAZENECA-2020SF69360

PATIENT
  Age: 66 Year
  Sex: Female
  Weight: 60 kg

DRUGS (14)
  1. FASENRA [Suspect]
     Active Substance: BENRALIZUMAB
     Indication: ASTHMA
     Route: 058
     Dates: start: 20200918
  2. FASENRA [Suspect]
     Active Substance: BENRALIZUMAB
     Indication: ASTHMA
     Route: 058
     Dates: start: 20200926, end: 20201125
  3. SINTROM [Concomitant]
     Active Substance: ACENOCOUMAROL
     Indication: ATRIAL FIBRILLATION
     Dosage: 3/4 TABLET FOR 2 DAYS AND HALF TABLET FOR 5 DAYS
     Route: 048
     Dates: end: 20201201
  4. MILGAMMA [Concomitant]
  5. LERIDIP [Concomitant]
  6. PANTOPRAZOLE [Concomitant]
     Active Substance: PANTOPRAZOLE
  7. SPIRONOLACTONE. [Concomitant]
     Active Substance: SPIRONOLACTONE
     Indication: CARDIAC FAILURE
     Dosage: 1.0DF UNKNOWN
     Route: 048
     Dates: end: 20201201
  8. EUTHYROX [Concomitant]
     Active Substance: LEVOTHYROXINE SODIUM
     Indication: HYPOTHYROIDISM
     Dosage: 1.0DF UNKNOWN
     Route: 048
     Dates: end: 20201201
  9. MILURIT [Concomitant]
     Active Substance: ALLOPURINOL
     Indication: HYPERURICAEMIA
     Dosage: 1.0DF UNKNOWN
     Route: 048
     Dates: end: 20201201
  10. NEBILET [Concomitant]
     Active Substance: NEBIVOLOL
     Indication: HYPERTENSION
     Dosage: 5 MG, HALF TABLET
     Route: 048
     Dates: end: 20201201
  11. FOSTER [Concomitant]
     Active Substance: BECLOMETHASONE\FORMOTEROL
     Indication: ASTHMA
     Dosage: 2 PUFFS, 2 PER DAY
     Route: 055
     Dates: end: 20201201
  12. FASENRA [Suspect]
     Active Substance: BENRALIZUMAB
     Indication: ASTHMA
     Route: 058
  13. ATACAND [Concomitant]
     Active Substance: CANDESARTAN CILEXETIL
  14. FUROSEMID [Concomitant]
     Active Substance: FUROSEMIDE
     Indication: CARDIAC FAILURE
     Dosage: 0.5DF UNKNOWN
     Route: 048
     Dates: end: 20201201

REACTIONS (2)
  - Ischaemic stroke [Fatal]
  - Cardio-respiratory arrest [Fatal]

NARRATIVE: CASE EVENT DATE: 20201126
